FAERS Safety Report 6807140-8 (Version None)
Quarter: 2010Q2

REPORT INFORMATION
  Report Type: 
  Country: None (occurrence: None)
  Receive Date: 20100629
  Receipt Date: 20080919
  Transmission Date: 20101027
  Serious: No
  Sender: FDA-Public Use
  Company Number: US-PFIZER INC-2008053792

PATIENT
  Sex: Female
  Weight: 74.39 kg

DRUGS (1)
  1. ARTHROTEC [Suspect]
     Indication: BURSITIS
     Dosage: 75/200;150/400
     Route: 048
     Dates: start: 20080603

REACTIONS (3)
  - CHILLS [None]
  - HEADACHE [None]
  - PAIN [None]
